FAERS Safety Report 10544032 (Version 2)
Quarter: 2019Q1

REPORT INFORMATION
  Report Type: Spontaneous
  Country: FR (occurrence: FR)
  Receive Date: 20141027
  Receipt Date: 20190228
  Transmission Date: 20190417
  Serious: Yes (Hospitalization)
  Sender: FDA-Public Use
  Company Number: FR-SA-2014SA142299

PATIENT
  Age: 46 Year
  Sex: Male
  Weight: 78 kg

DRUGS (11)
  1. CEFOXITIN [Suspect]
     Active Substance: CEFOXITIN SODIUM
     Indication: LUNG DISORDER
     Dosage: 2 G, QD
     Route: 042
     Dates: start: 20140829, end: 20140830
  2. PARACETAMOL [Concomitant]
     Active Substance: ACETAMINOPHEN
     Dosage: UNK UNK, UNK
     Route: 065
     Dates: start: 20140822, end: 20140825
  3. ALPRAZOLAM. [Suspect]
     Active Substance: ALPRAZOLAM
     Dosage: .5 MG,QD
     Route: 048
     Dates: start: 20140823, end: 20140903
  4. EUPANTOL [Suspect]
     Active Substance: PANTOPRAZOLE SODIUM
     Indication: PRODUCT USED FOR UNKNOWN INDICATION
     Dosage: 1 DF,QD
     Route: 065
     Dates: start: 20140822, end: 20140903
  5. LEVOFLOXACIN. [Concomitant]
     Active Substance: LEVOFLOXACIN
     Indication: LUNG DISORDER
     Dosage: UNK UNK, UNK
     Route: 065
     Dates: start: 20140823, end: 20140825
  6. URAPIDIL [Concomitant]
     Active Substance: URAPIDIL
     Dosage: UNK UNK, UNK
     Route: 065
     Dates: start: 20140824, end: 20140825
  7. TERBUTALINE [Concomitant]
     Active Substance: TERBUTALINE
     Dosage: UNK UNK, UNK
     Route: 065
     Dates: start: 20140822, end: 20140830
  8. DAFALGAN CODEINE [Concomitant]
     Active Substance: ACETAMINOPHEN\CODEINE PHOSPHATE
     Dosage: UNK UNK, UNK
     Route: 065
     Dates: start: 20140825, end: 20140830
  9. CEFOTAXIME SODIUM [Suspect]
     Active Substance: CEFOTAXIME SODIUM
     Indication: LUNG DISORDER
     Dosage: 6 G, QD
     Route: 042
     Dates: start: 20140823, end: 20140830
  10. FUROSEMIDE. [Concomitant]
     Active Substance: FUROSEMIDE
     Dosage: UNK UNK, UNK
     Route: 065
     Dates: start: 20140825, end: 20140825
  11. LOVENOX [Suspect]
     Active Substance: ENOXAPARIN SODIUM
     Dosage: 4000 IU,QD
     Route: 058
     Dates: start: 20140822, end: 20140903

REACTIONS (4)
  - Drug reaction with eosinophilia and systemic symptoms [Unknown]
  - Rash [Recovering/Resolving]
  - Hyperthermia [Unknown]
  - Eosinophilia [Unknown]

NARRATIVE: CASE EVENT DATE: 20140830
